FAERS Safety Report 8353679-6 (Version None)
Quarter: 2012Q2

REPORT INFORMATION
  Report Type: 
  Country: None (occurrence: None)
  Receive Date: 20120511
  Receipt Date: 20120504
  Transmission Date: 20120825
  Serious: Yes (Hospitalization)
  Sender: FDA-Public Use
  Company Number: SE-UCBSA-056893

PATIENT
  Age: 39 Year
  Sex: Female

DRUGS (5)
  1. ORUDIS [Suspect]
     Dates: start: 20040712, end: 20110101
  2. METHOTREXATE [Concomitant]
     Indication: RHEUMATOID ARTHRITIS
     Dosage: 15,15 MG
     Dates: start: 20041017, end: 20120119
  3. CIMZIA [Suspect]
     Indication: RHEUMATOID ARTHRITIS
     Dosage: 200,200,MG
     Dates: start: 20111014, end: 20111115
  4. ORUDIS [Suspect]
     Indication: RHEUMATOID ARTHRITIS
     Dates: start: 20110101, end: 20111215
  5. REMICADE [Concomitant]
     Indication: RHEUMATOID ARTHRITIS
     Dates: end: 20111001

REACTIONS (1)
  - COLITIS ULCERATIVE [None]
